FAERS Safety Report 21545925 (Version 1)
Quarter: 2022Q4

REPORT INFORMATION
  Report Type: Report from Study
  Country: US (occurrence: US)
  Receive Date: 20221103
  Receipt Date: 20221103
  Transmission Date: 20230112
  Serious: No
  Sender: FDA-Public Use
  Company Number: US-002147023-NVSC2022US245987

PATIENT
  Sex: Male

DRUGS (2)
  1. VIJOICE [Suspect]
     Active Substance: ALPELISIB
     Indication: Product used for unknown indication
     Dosage: 125 MG, QD
     Route: 048
  2. VIJOICE [Suspect]
     Active Substance: ALPELISIB
     Dosage: 50 MG, QD
     Route: 048

REACTIONS (8)
  - Lymphoedema [Recovering/Resolving]
  - Varicose vein [Recovering/Resolving]
  - Swelling [Recovering/Resolving]
  - Psoriasis [Recovering/Resolving]
  - Mental disorder [Recovering/Resolving]
  - Nausea [Recovering/Resolving]
  - Decreased appetite [Recovering/Resolving]
  - Diarrhoea [Recovering/Resolving]
